FAERS Safety Report 8645824 (Version 5)
Quarter: 2012Q4

REPORT INFORMATION
  Report Type: Report from Study
  Country: AT (occurrence: AT)
  Receive Date: 20120702
  Receipt Date: 20120911
  Transmission Date: 20130627
  Serious: Yes (Hospitalization)
  Sender: FDA-Public Use
  Company Number: AT-JNJFOC-20120612256

PATIENT
  Age: 84 Year
  Sex: Male

DRUGS (11)
  1. ABIRATERONE ACETATE [Suspect]
     Indication: PROSTATE CANCER METASTATIC
     Route: 048
     Dates: start: 20081017, end: 20101110
  2. ABIRATERONE ACETATE [Suspect]
     Indication: PROSTATE CANCER METASTATIC
     Route: 048
     Dates: start: 20101111, end: 20120613
  3. PREDNISOLONE [Suspect]
     Indication: PROSTATE CANCER METASTATIC
     Route: 048
     Dates: start: 20101111, end: 20120613
  4. ZOMETA [Concomitant]
     Indication: METASTASES TO BONE
     Route: 042
     Dates: start: 200701
  5. ZOMETA [Concomitant]
     Indication: PROPHYLAXIS
     Route: 042
     Dates: start: 200701
  6. LIPCOR [Concomitant]
     Indication: PROPHYLAXIS
     Route: 048
     Dates: start: 200601
  7. MYOLASTAN [Concomitant]
     Indication: MUSCULOSKELETAL STIFFNESS
     Route: 048
     Dates: start: 20081114
  8. CO-DILATREND [Concomitant]
     Indication: HYPERTENSION
     Route: 048
     Dates: start: 20090409
  9. SITAGLIPTIN PHOSPHATE [Concomitant]
     Indication: DIABETES MELLITUS
     Route: 048
     Dates: start: 20091003
  10. GLUCOPHAGE [Concomitant]
     Indication: TYPE 2 DIABETES MELLITUS
     Route: 048
     Dates: start: 20081003
  11. DUROGESIC [Concomitant]
     Indication: BACK PAIN
     Route: 062
     Dates: start: 20120123

REACTIONS (1)
  - Leukocytoclastic vasculitis [Not Recovered/Not Resolved]
